FAERS Safety Report 24585171 (Version 2)
Quarter: 2025Q1

REPORT INFORMATION
  Report Type: Spontaneous
  Country: US (occurrence: US)
  Receive Date: 20241106
  Receipt Date: 20250128
  Transmission Date: 20250408
  Serious: No
  Sender: PFIZER
  Company Number: US-PFIZER INC-202400293832

PATIENT
  Age: 68 Year
  Sex: Female

DRUGS (1)
  1. IBRANCE [Suspect]
     Active Substance: PALBOCICLIB

REACTIONS (3)
  - Aphonia [Unknown]
  - Influenza [Unknown]
  - Cardiac disorder [Unknown]
